FAERS Safety Report 9830520 (Version 2)
Quarter: 2014Q1

REPORT INFORMATION
  Report Type: Spontaneous
  Country: BR (occurrence: BR)
  Receive Date: 20140120
  Receipt Date: 20140210
  Transmission Date: 20141002
  Serious: Yes (Other)
  Sender: FDA-Public Use
  Company Number: BR-NOVOPROD-398046

PATIENT
  Sex: Female
  Weight: 76 kg

DRUGS (9)
  1. NOVOLIN N [Suspect]
     Indication: TYPE 2 DIABETES MELLITUS
     Dosage: 50 IU, QD (30 IU IIN THE MORNING AND 20IU AT NIGHT)
     Route: 065
  2. OMEPRAZOLE [Concomitant]
     Indication: GASTROOESOPHAGEAL REFLUX DISEASE
     Dosage: UNK (1 TAB BEFORE FIRST MEAL)
     Route: 065
  3. METFORMIN [Concomitant]
     Indication: TYPE 2 DIABETES MELLITUS
     Dosage: UNK (3 TAB, 1 TAB IN MEALS)
     Route: 048
  4. AAS [Concomitant]
     Indication: ANTIPLATELET THERAPY
     Dosage: UNK (1 TAB AT MEALS)
     Route: 048
  5. MIRACALCIO VIT D [Concomitant]
     Indication: MINERAL SUPPLEMENTATION
     Dosage: UNK (1 TAB)
     Route: 048
  6. LOSARTAN [Concomitant]
     Indication: BLOOD PRESSURE
     Dosage: UNK (1 TAB IN THE MORNING)
     Route: 048
  7. PRESSAT [Concomitant]
     Indication: BLOOD PRESSURE
     Dosage: UNK (1 TAB IN THE NIGHT)
     Route: 048
  8. ENAPREN [Concomitant]
     Indication: HYPERTENSION
     Dosage: UNK (1 TAB)
     Route: 048
  9. ESCITALOPRAM OXALATE [Concomitant]
     Indication: DEPRESSION
     Dosage: UNK  (10 MG, 1 TAB MORNIG)
     Route: 048
     Dates: start: 20140119

REACTIONS (4)
  - Venous occlusion [Recovered/Resolved]
  - Malaise [Recovered/Resolved]
  - Nausea [Recovered/Resolved]
  - Aphagia [Unknown]
